FAERS Safety Report 17192305 (Version 1)
Quarter: 2019Q4

REPORT INFORMATION
  Report Type: Spontaneous
  Country: US (occurrence: US)
  Receive Date: 20191223
  Receipt Date: 20191223
  Transmission Date: 20200122
  Serious: No
  Sender: FDA-Public Use
  Company Number: US-009507513-1912USA009315

PATIENT
  Age: 58 Year
  Sex: Female

DRUGS (2)
  1. TEMODAR [Suspect]
     Active Substance: TEMOZOLOMIDE
     Indication: METASTATIC MALIGNANT MELANOMA
     Dosage: 200 MILLIGRAM/SQ. METER, 5 DAYS ON, 23 DAYS OFF
     Route: 048
  2. TEMODAR [Suspect]
     Active Substance: TEMOZOLOMIDE
     Indication: MALIGNANT MELANOMA

REACTIONS (1)
  - Product use in unapproved indication [Unknown]
